FAERS Safety Report 7412469-9 (Version None)
Quarter: 2011Q2

REPORT INFORMATION
  Report Type: 
  Country: None (occurrence: None)
  Receive Date: 20110413
  Receipt Date: 20110407
  Transmission Date: 20111010
  Serious: Yes (Hospitalization)
  Sender: FDA-Public Use
  Company Number: PHHO2010NL09643

PATIENT
  Sex: Female
  Weight: 89.6 kg

DRUGS (3)
  1. RADIATION [Concomitant]
  2. EVEROLIMUS [Suspect]
     Dosage: 5 MG, QD
     Route: 048
     Dates: start: 20100609
  3. CISPLATIN [Concomitant]

REACTIONS (2)
  - DIARRHOEA [None]
  - FAECALOMA [None]
